FAERS Safety Report 8070408-4 (Version None)
Quarter: 2012Q1

REPORT INFORMATION
  Report Type: 
  Country: None (occurrence: None)
  Receive Date: 20120125
  Receipt Date: 20120119
  Transmission Date: 20120608
  Serious: Yes (Other)
  Sender: FDA-Public Use
  Company Number: US-ROCHE-796215

PATIENT
  Sex: Female
  Weight: 115.5 kg

DRUGS (2)
  1. ZELBORAF [Suspect]
     Route: 048
  2. ZELBORAF [Suspect]
     Indication: METASTATIC MALIGNANT MELANOMA
     Dosage: LAST DOSE PRIOR TO SAE: 06 SEPTEMBER 2011
     Route: 048

REACTIONS (1)
  - UVEITIS [None]
